FAERS Safety Report 15999593 (Version 1)
Quarter: 2019Q1

REPORT INFORMATION
  Report Type: Spontaneous
  Country: CN (occurrence: CN)
  Receive Date: 20190225
  Receipt Date: 20190225
  Transmission Date: 20190418
  Serious: Yes (Life-Threatening)
  Sender: FDA-Public Use
  Company Number: CN-JNJFOC-20190219596

PATIENT
  Age: 63 Year
  Sex: Male
  Weight: 40 kg

DRUGS (2)
  1. DUROGESIC D-TRANS [Suspect]
     Active Substance: FENTANYL
     Indication: ABDOMINAL PAIN
     Route: 062
     Dates: start: 20180710, end: 20180710
  2. DUROGESIC D-TRANS [Suspect]
     Active Substance: FENTANYL
     Indication: RENAL CANCER
     Route: 062
     Dates: start: 20180710, end: 20180710

REACTIONS (6)
  - Urinary retention [Recovering/Resolving]
  - Respiratory depression [Recovering/Resolving]
  - Apathy [Recovering/Resolving]
  - Urinary fistula [Unknown]
  - Inappropriate schedule of product administration [Unknown]
  - Off label use [Unknown]

NARRATIVE: CASE EVENT DATE: 20180710
